FAERS Safety Report 5143781-4 (Version None)
Quarter: 2006Q4

REPORT INFORMATION
  Report Type: 
  Country: None (occurrence: None)
  Receive Date: 20061106
  Receipt Date: 20061017
  Transmission Date: 20070319
  Serious: Yes (Other)
  Sender: FDA-Public Use
  Company Number: PHBS2006BR16254

PATIENT
  Sex: Female

DRUGS (1)
  1. ZOMETA [Suspect]
     Indication: METASTASES TO BONE
     Dosage: 1 DF, EVERY 28 DAYS
     Route: 065
     Dates: start: 20030609, end: 20060516

REACTIONS (3)
  - INFECTION [None]
  - OSTEONECROSIS [None]
  - PAIN IN JAW [None]
